FAERS Safety Report 24699423 (Version 1)
Quarter: 2024Q4

REPORT INFORMATION
  Report Type: Spontaneous
  Country: PR (occurrence: PR)
  Receive Date: 20241205
  Receipt Date: 20241205
  Transmission Date: 20250115
  Serious: No
  Sender: LEO PHARM
  Company Number: PR-LEO Pharma-374005

PATIENT
  Age: 24 Year
  Sex: Female

DRUGS (2)
  1. ADBRY [Suspect]
     Active Substance: TRALOKINUMAB-LDRM
     Indication: Neurodermatitis
     Dosage: DISCONTINUED ADBRY ON AN UNKNOWN DATE
     Route: 058
     Dates: start: 202408
  2. ADBRY [Suspect]
     Active Substance: TRALOKINUMAB-LDRM
     Indication: Dermatitis atopic
     Dosage: DISCONTINUED ADBRY ON AN UNKNOWN DATE
     Route: 058
     Dates: start: 202408

REACTIONS (2)
  - Peripheral swelling [Unknown]
  - Fluid retention [Unknown]
